FAERS Safety Report 10172405 (Version 1)
Quarter: 2014Q2

REPORT INFORMATION
  Report Type: Spontaneous
  Country: US (occurrence: US)
  Receive Date: 20140515
  Receipt Date: 20140515
  Transmission Date: 20141212
  Serious: Yes (Other)
  Sender: FDA-Public Use
  Company Number: US-ASTRAZENECA-2014SE31394

PATIENT
  Age: 64 Year
  Sex: Female
  Weight: 56.2 kg

DRUGS (5)
  1. PRILOSEC [Suspect]
     Indication: GASTROOESOPHAGEAL REFLUX DISEASE
     Dosage: DAILY
     Route: 048
  2. PRILOSEC [Suspect]
     Indication: DUODENAL ULCER
     Dosage: DAILY
     Route: 048
  3. PRILOSEC OTC [Suspect]
     Indication: GASTROOESOPHAGEAL REFLUX DISEASE
     Dosage: DAILY
     Route: 048
  4. PRILOSEC OTC [Suspect]
     Indication: DUODENAL ULCER
     Dosage: DAILY
     Route: 048
  5. CYMBALTA [Concomitant]
     Indication: ANXIETY
     Route: 048
     Dates: start: 2013

REACTIONS (5)
  - Ulcer haemorrhage [Unknown]
  - Gastric disorder [Unknown]
  - Vomiting [Unknown]
  - Gastrooesophageal reflux disease [Unknown]
  - Drug ineffective [Unknown]
